FAERS Safety Report 11836386 (Version 2)
Quarter: 2016Q1

REPORT INFORMATION
  Report Type: Spontaneous
  Country: US (occurrence: US)
  Receive Date: 20151215
  Receipt Date: 20160122
  Transmission Date: 20160525
  Serious: Yes (Hospitalization)
  Sender: FDA-Public Use
  Company Number: US-BEH-2015056719

PATIENT
  Sex: Female
  Weight: 80 kg

DRUGS (28)
  1. HIZENTRA [Suspect]
     Active Substance: HUMAN IMMUNOGLOBULIN G
     Dosage: 4 GM 20 ML VIAL
     Route: 058
     Dates: start: 20121127
  2. OMEGA-3 ACIDS [Concomitant]
     Active Substance: OMEGA-3 FATTY ACIDS
  3. ACETAMINOPHEN. [Concomitant]
     Active Substance: ACETAMINOPHEN
  4. EPIPEN [Concomitant]
     Active Substance: EPINEPHRINE
  5. LOPRESSOR [Concomitant]
     Active Substance: METOPROLOL TARTRATE
  6. MAGNESIUM [Concomitant]
     Active Substance: MAGNESIUM
  7. CARDURA [Concomitant]
     Active Substance: DOXAZOSIN MESYLATE
  8. MINOXIDIL. [Concomitant]
     Active Substance: MINOXIDIL
  9. HYDROCODONE BITARTRATE AND ACETAMINOPHEN [Concomitant]
     Active Substance: ACETAMINOPHEN\HYDROCODONE BITARTRATE
  10. VITAMIN B COMPLEX [Concomitant]
     Active Substance: CYANOCOBALAMIN\DEXPANTHENOL\NIACINAMIDE\PYRIDOXINE HYDROCHLORIDE\RIBOFLAVIN 5^-PHOSPHATE SODIUM\THIAMINE HYDROCHLORIDE\VITAMIN B COMPLEX
  11. NIFEDIPINE ER [Concomitant]
     Active Substance: NIFEDIPINE
  12. DIPHENHYDRAMINE. [Concomitant]
     Active Substance: DIPHENHYDRAMINE
  13. HIZENTRA [Suspect]
     Active Substance: HUMAN IMMUNOGLOBULIN G
     Indication: IMMUNODEFICIENCY COMMON VARIABLE
     Dosage: 1 GM 5 ML VIAL
     Route: 058
     Dates: start: 20121127
  14. LIDOCAINE. [Concomitant]
     Active Substance: LIDOCAINE
  15. CORTEF [Concomitant]
     Active Substance: HYDROCORTISONE
  16. PENTOXIFYLLINE. [Concomitant]
     Active Substance: PENTOXIFYLLINE
  17. VERAPAMIL [Concomitant]
     Active Substance: VERAPAMIL HYDROCHLORIDE
  18. VITAMIN B12 [Concomitant]
     Active Substance: CYANOCOBALAMIN
  19. PROBIOTIC [Concomitant]
     Active Substance: PROBIOTICS NOS
  20. TRAZODONE [Concomitant]
     Active Substance: TRAZODONE HYDROCHLORIDE
  21. MULTIVITAMINS [Concomitant]
     Active Substance: VITAMINS
  22. SINGULAIR [Concomitant]
     Active Substance: MONTELUKAST SODIUM
  23. ATIVAN [Concomitant]
     Active Substance: LORAZEPAM
  24. NABUMETONE. [Concomitant]
     Active Substance: NABUMETONE
  25. PLAQUENIL [Concomitant]
     Active Substance: HYDROXYCHLOROQUINE SULFATE
  26. LIDOCAINE/PRILOCAINE [Concomitant]
  27. PAXIL [Concomitant]
     Active Substance: PAROXETINE HYDROCHLORIDE
  28. HYDROCODONE [Concomitant]
     Active Substance: HYDROCODONE

REACTIONS (2)
  - Bacterial infection [Unknown]
  - Spinal cord infection [Unknown]
